FAERS Safety Report 7000519-3 (Version None)
Quarter: 2010Q3

REPORT INFORMATION
  Report Type: 
  Country: None (occurrence: None)
  Receive Date: 20100920
  Receipt Date: 20070607
  Transmission Date: 20110219
  Serious: Yes (Hospitalization, Other)
  Sender: FDA-Public Use
  Company Number: US-ASTRAZENECA-2006UW22916

PATIENT
  Age: 49 Year
  Sex: Female
  Weight: 89.4 kg

DRUGS (12)
  1. SEROQUEL [Suspect]
     Indication: DEPRESSION
     Dosage: 200 MG, 100-200 MG
     Route: 048
     Dates: start: 20050816
  2. SEROQUEL [Suspect]
     Indication: STRESS
     Dosage: 200 MG, 100-200 MG
     Route: 048
     Dates: start: 20050816
  3. PREDNISONE [Concomitant]
     Dates: start: 20050816
  4. ACTONEL [Concomitant]
     Dosage: 35 MG EVERY WEEK
     Dates: start: 20050816
  5. DAPSONE [Concomitant]
     Dates: start: 20050816
  6. PREVACID [Concomitant]
     Dates: start: 20050816
  7. CALCIUM [Concomitant]
     Dates: start: 20050816
  8. ZOLOFT [Concomitant]
     Dosage: 100-150 MG EVERYDAY
     Dates: start: 20050816
  9. AMBIEN [Concomitant]
     Dates: start: 20061116
  10. VITAMIN D [Concomitant]
     Dates: start: 20061116
  11. CHLOROQUINE PHOSPHATE [Concomitant]
     Dates: start: 20061116
  12. OXYCODONE HCL [Concomitant]
     Dates: start: 20061116

REACTIONS (3)
  - DIABETES MELLITUS [None]
  - PANCREATITIS [None]
  - TYPE 2 DIABETES MELLITUS [None]
